FAERS Safety Report 5475397-4 (Version None)
Quarter: 2007Q4

REPORT INFORMATION
  Report Type: 
  Country: None (occurrence: None)
  Receive Date: 20071003
  Receipt Date: 20070924
  Transmission Date: 20080405
  Serious: Yes (Hospitalization, Other)
  Sender: FDA-Public Use
  Company Number: PHBS2007BR15852

PATIENT
  Age: 87 Year
  Sex: Male
  Weight: 65 kg

DRUGS (10)
  1. EXELON [Suspect]
     Indication: DEMENTIA ALZHEIMER'S TYPE
     Dosage: 1.5 MG, BID
     Route: 048
     Dates: start: 20010101, end: 20020101
  2. EXELON [Suspect]
     Dosage: 3 MG, BID
     Route: 048
     Dates: start: 20020101, end: 20070101
  3. EXELON [Suspect]
     Dosage: 6 MG, BID
     Route: 048
     Dates: start: 20070101
  4. AMIODARONE [Concomitant]
     Indication: ATRIAL FIBRILLATION
     Dosage: 2 DF, QD
     Dates: start: 19630101
  5. RISPERIDONE [Concomitant]
     Dosage: 1 DF, QD
     Route: 048
     Dates: start: 20010101
  6. MEMANTINE HCL [Concomitant]
     Indication: DEMENTIA ALZHEIMER'S TYPE
     Dosage: 2 DF, BID
     Route: 048
  7. TICLID [Concomitant]
     Indication: ANTICOAGULANT THERAPY
     Dosage: 1 DF, BID
     Route: 048
     Dates: start: 20070101
  8. ASPIRIN [Concomitant]
     Indication: ANTICOAGULANT THERAPY
     Dates: end: 20070101
  9. SUSTRATE [Concomitant]
     Dosage: 1 DF, BID
     Route: 048
  10. MACRODANTINA [Concomitant]
     Indication: PROPHYLAXIS
     Route: 048

REACTIONS (2)
  - EATING DISORDER [None]
  - GASTROINTESTINAL TUBE INSERTION [None]
